FAERS Safety Report 12478613 (Version 1)
Quarter: 2016Q2

REPORT INFORMATION
  Report Type: Spontaneous
  Country: US (occurrence: US)
  Receive Date: 20160619
  Receipt Date: 20160619
  Transmission Date: 20160815
  Serious: No
  Sender: FDA-Public Use
  Company Number: US-ENDO PHARMACEUTICALS INC.-2016-002189

PATIENT
  Age: 61 Year
  Sex: Female
  Weight: 63.56 kg

DRUGS (2)
  1. NYSTATIN CREAM [Suspect]
     Active Substance: NYSTATIN
     Indication: RASH
     Route: 061
     Dates: start: 201603, end: 201603
  2. NYSTATIN. [Concomitant]
     Active Substance: NYSTATIN
     Indication: RASH

REACTIONS (1)
  - Drug ineffective [Unknown]

NARRATIVE: CASE EVENT DATE: 201603
